FAERS Safety Report 16906608 (Version 1)
Quarter: 2019Q4

REPORT INFORMATION
  Report Type: Spontaneous
  Country: JP (occurrence: JP)
  Receive Date: 20191011
  Receipt Date: 20191011
  Transmission Date: 20200122
  Serious: Yes (Other)
  Sender: FDA-Public Use
  Company Number: JP-AMGEN-JPNNI2019166465

PATIENT

DRUGS (1)
  1. GRAN [Suspect]
     Active Substance: FILGRASTIM
     Indication: HAEMATOPOIETIC STEM CELL MOBILISATION
     Dosage: UNK
     Route: 065

REACTIONS (5)
  - Renal impairment [Recovering/Resolving]
  - Hyperventilation [Recovering/Resolving]
  - Pyrexia [Recovering/Resolving]
  - Hepatic function abnormal [Recovering/Resolving]
  - Hypoaesthesia [Recovering/Resolving]
